FAERS Safety Report 6957437-6 (Version None)
Quarter: 2010Q3

REPORT INFORMATION
  Report Type: 
  Country: None (occurrence: None)
  Receive Date: 20100831
  Receipt Date: 20100819
  Transmission Date: 20110219
  Serious: Yes (Other)
  Sender: FDA-Public Use
  Company Number: IN-TYCO HEALTHCARE/MALLINCKRODT-T201001847

PATIENT
  Age: 46 Year
  Sex: Female

DRUGS (3)
  1. TOFRANIL-PM [Suspect]
     Dosage: 75 MG, QD
  2. ESCITALOPRAM [Suspect]
     Indication: DYSTHYMIC DISORDER
     Dosage: 20 MG, QD
  3. GLYBURIDE [Suspect]
     Indication: TYPE 2 DIABETES MELLITUS
     Dosage: 5 MG, QD

REACTIONS (5)
  - BRAIN MASS [None]
  - DEPRESSED MOOD [None]
  - DRUG INTERACTION [None]
  - GALACTORRHOEA [None]
  - SLEEP DISORDER [None]
